FAERS Safety Report 17666017 (Version 1)
Quarter: 2020Q2

REPORT INFORMATION
  Report Type: Spontaneous
  Country: US (occurrence: US)
  Receive Date: 20200414
  Receipt Date: 20200414
  Transmission Date: 20200713
  Serious: Yes (Other)
  Sender: FDA-Public Use
  Company Number: None

PATIENT
  Age: 1 Day
  Sex: Male
  Weight: 3.39 kg

DRUGS (2)
  1. LIDOCAINE 1% [Suspect]
     Active Substance: LIDOCAINE
  2. DICYCLOMINE [Suspect]
     Active Substance: DICYCLOMINE HYDROCHLORIDE
     Indication: CIRCUMCISION
     Dates: start: 20200411, end: 20200411

REACTIONS (3)
  - Product label confusion [None]
  - Drug monitoring procedure not performed [None]
  - Wrong product administered [None]

NARRATIVE: CASE EVENT DATE: 20200411
